FAERS Safety Report 14747649 (Version 1)
Quarter: 2018Q2

REPORT INFORMATION
  Report Type: Report from Study
  Country: IT (occurrence: IT)
  Receive Date: 20180411
  Receipt Date: 20180411
  Transmission Date: 20180711
  Serious: Yes (Hospitalization)
  Sender: FDA-Public Use
  Company Number: IT-BAYER-2018-064421

PATIENT
  Age: 89 Year
  Sex: Male

DRUGS (4)
  1. MOVICOL [Concomitant]
     Active Substance: POLYETHYLENE GLYCOL 3350\POTASSIUM CHLORIDE\SODIUM BICARBONATE\SODIUM CHLORIDE
     Dosage: UNK
     Route: 048
  2. CITALOPRAM [Concomitant]
     Active Substance: CITALOPRAM HYDROBROMIDE
     Dosage: UNK
     Route: 048
  3. CARDIOASPIRIN 100 MG GASTRORESISTANT TABLET (BAYER SPA) (ATC B01AC06) [Suspect]
     Active Substance: ASPIRIN
     Dosage: UNK
     Route: 048
  4. QUETIAPINE. [Concomitant]
     Active Substance: QUETIAPINE
     Dosage: UNK
     Route: 048

REACTIONS (6)
  - Fall [Unknown]
  - Apraxia [Unknown]
  - Head injury [None]
  - Abnormal faeces [Unknown]
  - Haematochezia [Unknown]
  - Subdural haematoma [Unknown]

NARRATIVE: CASE EVENT DATE: 20180206
